FAERS Safety Report 21466269 (Version 1)
Quarter: 2022Q4

REPORT INFORMATION
  Report Type: Spontaneous
  Country: US (occurrence: None)
  Receive Date: 20221014
  Receipt Date: 20221014
  Transmission Date: 20230113
  Serious: No
  Sender: FDA-Public Use
  Company Number: None

PATIENT
  Age: 62 Year
  Sex: Female
  Weight: 63 kg

DRUGS (2)
  1. NEBIVOLOL [Suspect]
     Active Substance: NEBIVOLOL
     Indication: Ventricular extrasystoles
     Dosage: FREQUENCY : DAILY;?
     Route: 048
     Dates: start: 20220829, end: 20221011
  2. VITAMIN D3 [Concomitant]
     Active Substance: CHOLECALCIFEROL

REACTIONS (3)
  - Ear congestion [None]
  - Ear discomfort [None]
  - Product substitution issue [None]

NARRATIVE: CASE EVENT DATE: 20221003
